FAERS Safety Report 20479685 (Version 2)
Quarter: 2022Q1

REPORT INFORMATION
  Report Type: Report from Study
  Country: US (occurrence: US)
  Receive Date: 20220216
  Receipt Date: 20220223
  Transmission Date: 20220423
  Serious: Yes (Hospitalization, Other)
  Sender: FDA-Public Use
  Company Number: US-PFIZER INC-202200249097

PATIENT
  Age: 64 Year
  Sex: Male

DRUGS (3)
  1. BRAFTOVI [Suspect]
     Active Substance: ENCORAFENIB
     Dosage: 450 MG, 1X/DAY (TAKE 6 (75MG) CAPSULES BY MOUTH EVERY DAY)
     Route: 048
  2. BRAFTOVI [Suspect]
     Active Substance: ENCORAFENIB
     Dosage: 225 MG
  3. MEKTOVI [Suspect]
     Active Substance: BINIMETINIB
     Dosage: 45 MG, 2X/DAY (TAKE 3 (15 MG) TABLETS BY MOUTH TWO TIMES PER DAY)
     Route: 048
     Dates: end: 2021

REACTIONS (1)
  - Internal haemorrhage [Unknown]

NARRATIVE: CASE EVENT DATE: 20210101
